FAERS Safety Report 4345468-4 (Version None)
Quarter: 2004Q1

REPORT INFORMATION
  Report Type: 
  Country: None (occurrence: None)
  Receive Date: 20040319
  Receipt Date: 20040204
  Transmission Date: 20041129
  Serious: No
  Sender: FDA-Public Use
  Company Number: US-JNJFOC-20040201654

PATIENT
  Age: 22 Year
  Sex: Female
  Weight: 58.9676 kg

DRUGS (3)
  1. ORTHO EVRA [Suspect]
     Indication: CONTRACEPTION
     Dosage: SEE IMAGE
     Route: 062
     Dates: start: 20030901, end: 20040101
  2. ORTHO EVRA [Suspect]
     Indication: CONTRACEPTION
     Dosage: SEE IMAGE
     Route: 062
     Dates: start: 20040101
  3. ZOLOFT [Concomitant]

REACTIONS (2)
  - APPLICATION SITE REACTION [None]
  - DEPRESSION [None]
